FAERS Safety Report 10290009 (Version 1)
Quarter: 2014Q3

REPORT INFORMATION
  Report Type: Spontaneous
  Country: US (occurrence: US)
  Receive Date: 20140710
  Receipt Date: 20140710
  Transmission Date: 20150326
  Serious: Yes (Hospitalization, Other)
  Sender: FDA-Public Use
  Company Number: US-SA-2014SA087649

PATIENT
  Age: 73 Year
  Sex: Male

DRUGS (4)
  1. HUMALOG [Concomitant]
     Active Substance: INSULIN LISPRO
  2. LANTUS [Suspect]
     Active Substance: INSULIN GLARGINE
     Indication: TYPE 2 DIABETES MELLITUS
     Dosage: DOSE: 85U AM/60 U PM
     Route: 065
     Dates: start: 2007
  3. LANTUS [Suspect]
     Active Substance: INSULIN GLARGINE
     Indication: TYPE 2 DIABETES MELLITUS
     Route: 065
     Dates: start: 1990
  4. SOLOSTAR [Concomitant]
     Active Substance: DEVICE
     Dates: start: 1990

REACTIONS (9)
  - Oxygen consumption decreased [Unknown]
  - Continuous positive airway pressure [Unknown]
  - Staphylococcal infection [Unknown]
  - Foot amputation [Unknown]
  - Osteomyelitis [Unknown]
  - Memory impairment [Unknown]
  - Toe amputation [Unknown]
  - Off label use [Unknown]
  - Investigation [Unknown]

NARRATIVE: CASE EVENT DATE: 2007
